FAERS Safety Report 16855549 (Version 2)
Quarter: 2020Q2

REPORT INFORMATION
  Report Type: Spontaneous
  Country: GB (occurrence: GB)
  Receive Date: 20190926
  Receipt Date: 20200619
  Transmission Date: 20200713
  Serious: Yes (Other)
  Sender: FDA-Public Use
  Company Number: GB-AMGEN-GBRSP2018162850

PATIENT
  Age: 64 Year
  Sex: Female

DRUGS (1)
  1. ENBREL [Suspect]
     Active Substance: ETANERCEPT
     Indication: RHEUMATOID ARTHRITIS
     Dosage: 25 MG, 2X/WEEK
     Route: 065

REACTIONS (6)
  - Foot fracture [Recovered/Resolved]
  - Joint dislocation [Recovered/Resolved]
  - Lung disorder [Recovered/Resolved]
  - Lower respiratory tract infection [Recovered/Resolved]
  - Cellulitis [Unknown]
  - Ankle fracture [Recovered/Resolved]
